FAERS Safety Report 10789213 (Version 1)
Quarter: 2015Q1

REPORT INFORMATION
  Report Type: Spontaneous
  Country: US (occurrence: US)
  Receive Date: 20150212
  Receipt Date: 20150212
  Transmission Date: 20150721
  Serious: No
  Sender: FDA-Public Use
  Company Number: US-GLAXOSMITHKLINE-A1088263A

PATIENT

DRUGS (3)
  1. PROVENTIL [Suspect]
     Active Substance: ALBUTEROL
  2. ADVAIR DISKUS [Suspect]
     Active Substance: FLUTICASONE PROPIONATE\SALMETEROL XINAFOATE
     Indication: ASTHMA
     Dosage: 500/50 MCG REDUCED TO 100/50 MCG
     Route: 055
  3. NO CONCURRENT MEDICATION [Concomitant]
     Active Substance: UNSPECIFIED INGREDIENT

REACTIONS (7)
  - Therapeutic response unexpected [Unknown]
  - Therapeutic response delayed [Unknown]
  - Off label use [Unknown]
  - Heart rate increased [Unknown]
  - Joint swelling [Unknown]
  - Dizziness [Unknown]
  - Dyspnoea [Unknown]
